FAERS Safety Report 20629822 (Version 1)
Quarter: 2022Q1

REPORT INFORMATION
  Report Type: Spontaneous
  Country: ES (occurrence: ES)
  Receive Date: 20220324
  Receipt Date: 20220324
  Transmission Date: 20220423
  Serious: Yes (Hospitalization, Other)
  Sender: FDA-Public Use
  Company Number: ES-ALVOGEN-2022-ALVOGEN-118772

PATIENT
  Age: 44 Year
  Sex: Female

DRUGS (2)
  1. LIDOCAINE [Suspect]
     Active Substance: LIDOCAINE
     Indication: Liposuction
     Dosage: 0.05% CONCENTRATION.
  2. EPINEPHRINE [Suspect]
     Active Substance: EPINEPHRINE
     Indication: Liposuction

REACTIONS (2)
  - Axillary nerve injury [Recovered/Resolved]
  - Neurotoxicity [Recovered/Resolved]
